FAERS Safety Report 20126931 (Version 1)
Quarter: 2021Q4

REPORT INFORMATION
  Report Type: Spontaneous
  Country: US (occurrence: None)
  Receive Date: 20211129
  Receipt Date: 20211129
  Transmission Date: 20220304
  Serious: Yes (Hospitalization)
  Sender: FDA-Public Use
  Company Number: None

PATIENT
  Age: 69 Year
  Sex: Male
  Weight: 130 kg

DRUGS (1)
  1. HYDROCHLOROTHIAZIDE\LISINOPRIL [Suspect]
     Active Substance: HYDROCHLOROTHIAZIDE\LISINOPRIL
     Indication: Hypertension
     Dosage: OTHER QUANTITY : 12.5/20MG;?FREQUENCY : DAILY;?
     Route: 048
     Dates: start: 20201202, end: 20210820

REACTIONS (1)
  - Pancreatitis acute [None]

NARRATIVE: CASE EVENT DATE: 20210818
